FAERS Safety Report 10029894 (Version 1)
Quarter: 2014Q1

REPORT INFORMATION
  Report Type: Spontaneous
  Country: US (occurrence: None)
  Receive Date: 20140306
  Receipt Date: 20140306
  Transmission Date: 20141002
  Serious: Yes (Hospitalization)
  Sender: FDA-Public Use
  Company Number: 163-21880-12111291

PATIENT
  Age: 83 Year
  Sex: Female

DRUGS (4)
  1. REVLIMID [Suspect]
     Indication: PLASMA CELL MYELOMA
     Dosage: 15 MG, 21 IN 28 D, PO
     Route: 048
     Dates: start: 20120803, end: 20120915
  2. B12 (VITAMIN B 12) [Concomitant]
  3. FLUIDS (I.V. SOLUTIONS) [Concomitant]
  4. KCL (POTASSIUM CHLORIDE) [Concomitant]

REACTIONS (1)
  - Diarrhoea [None]
